FAERS Safety Report 7522140-0 (Version None)
Quarter: 2011Q2

REPORT INFORMATION
  Report Type: 
  Country: None (occurrence: None)
  Receive Date: 20110603
  Receipt Date: 20110531
  Transmission Date: 20111010
  Serious: Yes (Hospitalization)
  Sender: FDA-Public Use
  Company Number: FR-PFIZER INC-2011116827

PATIENT
  Age: 28 Year
  Sex: Female

DRUGS (3)
  1. ADVIL LIQUI-GELS [Suspect]
     Indication: ODYNOPHAGIA
     Dosage: UNK
     Route: 048
     Dates: start: 20110330, end: 20110404
  2. ELUDRIL [Concomitant]
  3. ACETAMINOPHEN [Concomitant]

REACTIONS (1)
  - PLEURISY [None]
